FAERS Safety Report 6696786-6 (Version None)
Quarter: 2010Q2

REPORT INFORMATION
  Report Type: 
  Country: None (occurrence: None)
  Receive Date: 20100421
  Receipt Date: 20100311
  Transmission Date: 20101027
  Serious: No
  Sender: FDA-Public Use
  Company Number: US-000083

PATIENT
  Sex: Male
  Weight: 101.6057 kg

DRUGS (2)
  1. KUVAN [Suspect]
     Indication: PHENYLKETONURIA
     Dosage: 2000 MG QD ORAL
     Route: 048
     Dates: start: 20091008, end: 20100305
  2. ANTACID TAB [Concomitant]

REACTIONS (1)
  - ABDOMINAL PAIN UPPER [None]
